FAERS Safety Report 7610414-4 (Version None)
Quarter: 2011Q3

REPORT INFORMATION
  Report Type: 
  Country: None (occurrence: None)
  Receive Date: 20110715
  Receipt Date: 20110711
  Transmission Date: 20111222
  Serious: No
  Sender: FDA-Public Use
  Company Number: US-PFIZER INC-2011157308

PATIENT
  Sex: Male

DRUGS (1)
  1. NEURONTIN [Suspect]
     Indication: MOOD ALTERED
     Dosage: UNK

REACTIONS (6)
  - MENTAL DISORDER [None]
  - EATING DISORDER [None]
  - DRUG INEFFECTIVE [None]
  - ANGER [None]
  - RASH PRURITIC [None]
  - INSOMNIA [None]
